FAERS Safety Report 4321218-2 (Version None)
Quarter: 2004Q1

REPORT INFORMATION
  Report Type: 
  Country: None (occurrence: None)
  Receive Date: 20040323
  Receipt Date: 20040116
  Transmission Date: 20041129
  Serious: Yes (Hospitalization, Other)
  Sender: FDA-Public Use
  Company Number: PHBS2004JP01063

PATIENT
  Age: 79 Year
  Sex: Female
  Weight: 46 kg

DRUGS (6)
  1. DIOVAN [Suspect]
     Indication: HYPERTENSION
     Dosage: 80 MG/DAY
     Route: 048
     Dates: start: 20011219, end: 20031218
  2. PRERAN [Suspect]
     Indication: HYPERTENSION
     Dosage: 1 MG, QD
     Route: 048
     Dates: start: 20020605, end: 20031218
  3. SELECTOL [Suspect]
     Indication: HYPERTENSION
     Dosage: 200 MG, QD
     Route: 048
     Dates: start: 20010704, end: 20031218
  4. CALSLOT [Suspect]
     Indication: HYPERTENSION
     Dosage: 20 MG, QD
     Route: 048
     Dates: start: 20010509, end: 20031218
  5. SM [Concomitant]
     Indication: GASTRITIS
     Dosage: 3 G, UNK
     Route: 048
     Dates: start: 19980909
  6. OMEPRAZOLE [Suspect]
     Indication: REFLUX OESOPHAGITIS
     Dosage: 20 MG, QD
     Route: 048
     Dates: start: 20031029, end: 20031218

REACTIONS (6)
  - BLOOD CREATININE INCREASED [None]
  - FATIGUE [None]
  - NEPHROGENIC ANAEMIA [None]
  - PANCREATITIS [None]
  - POLYARTHRITIS [None]
  - RENAL FAILURE [None]
